FAERS Safety Report 5500043-0 (Version None)
Quarter: 2007Q4

REPORT INFORMATION
  Report Type: 
  Country: None (occurrence: None)
  Receive Date: 20071024
  Receipt Date: 20071016
  Transmission Date: 20080405
  Serious: Yes (Death, Hospitalization)
  Sender: FDA-Public Use
  Company Number: 2007SP017399

PATIENT
  Age: 76 Year
  Sex: Male
  Weight: 30 kg

DRUGS (3)
  1. TEMODAL [Suspect]
     Indication: MALIGNANT GLIOMA
     Dosage: 80 MG; QD; PO
     Route: 048
     Dates: start: 20070703
  2. BAKTAR [Concomitant]
  3. DEPAKENE [Concomitant]

REACTIONS (4)
  - ANOREXIA [None]
  - DISEASE PROGRESSION [None]
  - MALNUTRITION [None]
  - PNEUMONIA [None]
